FAERS Safety Report 9961057 (Version 1)
Quarter: 2014Q1

REPORT INFORMATION
  Report Type: Report from Study
  Country: US (occurrence: US)
  Receive Date: 20140305
  Receipt Date: 20140305
  Transmission Date: 20141002
  Serious: No
  Sender: FDA-Public Use
  Company Number: US-ABBVIE-13P-163-1109678-00

PATIENT
  Sex: Male

DRUGS (19)
  1. HUMIRA [Suspect]
     Indication: PSORIASIS
  2. ASA [Concomitant]
     Indication: PROPHYLAXIS
     Dosage: 325MG DAILY
  3. LANTUS [Concomitant]
     Indication: PRODUCT USED FOR UNKNOWN INDICATION
     Dosage: AT SLEEP
  4. METFORMIN [Concomitant]
     Indication: PRODUCT USED FOR UNKNOWN INDICATION
     Route: 048
  5. NOVALOG [Concomitant]
     Indication: DIABETES MELLITUS
     Dosage: BEFORE MEALS
  6. LASIX [Concomitant]
     Indication: OEDEMA
  7. POTASSIUM CHLORIDE [Concomitant]
     Indication: OEDEMA
  8. LISINOPRIL [Concomitant]
     Indication: PRODUCT USED FOR UNKNOWN INDICATION
     Dosage: 15MG DAILY
  9. METOPROLOL [Concomitant]
     Indication: CARDIAC DISORDER
     Route: 048
  10. NITROGLYCERINE [Concomitant]
     Indication: CARDIAC DISORDER
  11. METOCLOPRAMIDE [Concomitant]
     Indication: GASTROOESOPHAGEAL REFLUX DISEASE
  12. OMEPRAZOLE [Concomitant]
     Indication: GASTROOESOPHAGEAL REFLUX DISEASE
     Route: 048
  13. ROSUVASTATIN [Concomitant]
     Indication: BLOOD CHOLESTEROL INCREASED
     Dosage: 20MG DAILY
  14. CLOBEX [Concomitant]
     Indication: PSORIASIS
     Route: 061
  15. AMMONIUM LACTATE [Concomitant]
     Indication: PSORIASIS
     Route: 061
  16. HYDROCORTISONE [Concomitant]
     Indication: PSORIASIS
     Route: 061
  17. DERMALINE [Concomitant]
     Indication: PSORIASIS
     Route: 061
  18. KETOCONAZOLE [Concomitant]
     Indication: PSORIASIS
     Route: 061
  19. TRIAMCINOLONE [Concomitant]
     Indication: PSORIASIS
     Route: 061

REACTIONS (2)
  - Injection site pain [Recovered/Resolved]
  - Injection site haemorrhage [Recovered/Resolved]
